FAERS Safety Report 13872958 (Version 1)
Quarter: 2017Q3

REPORT INFORMATION
  Report Type: Spontaneous
  Country: US (occurrence: US)
  Receive Date: 20170816
  Receipt Date: 20170816
  Transmission Date: 20171127
  Serious: No
  Sender: FDA-Public Use
  Company Number: US-TARO-2017TAR00316

PATIENT
  Age: 62 Year
  Sex: Male
  Weight: 102.4 kg

DRUGS (1)
  1. TERBINAFINE HCL CREAM 1% (ATHLETES FOOT) [Suspect]
     Active Substance: TERBINAFINE HYDROCHLORIDE
     Indication: TINEA PEDIS
     Dosage: UNK
     Route: 061
     Dates: start: 20170410, end: 20170420

REACTIONS (2)
  - Drug ineffective [Recovered/Resolved]
  - Tinea pedis [Unknown]

NARRATIVE: CASE EVENT DATE: 201704
